FAERS Safety Report 26161178 (Version 1)
Quarter: 2025Q4

REPORT INFORMATION
  Report Type: Spontaneous
  Country: US (occurrence: None)
  Receive Date: 20251216
  Receipt Date: 20251216
  Transmission Date: 20260117
  Serious: No
  Sender: ENDO
  Company Number: US-ENDO USA, INC.-2025-002059

PATIENT
  Sex: Male

DRUGS (4)
  1. XIAFLEX [Suspect]
     Active Substance: COLLAGENASE CLOSTRIDIUM HISTOLYTICUM
     Indication: Peyronie^s disease
     Dosage: 0.58 MILLIGRAM, SINGLE (CYCLE 4, INJECTION 1;1X ON 2 DAYS, 1-3 DAYS APART EVERY 6 WEEKS)
     Dates: start: 2025, end: 2025
  2. XIAFLEX [Suspect]
     Active Substance: COLLAGENASE CLOSTRIDIUM HISTOLYTICUM
     Dosage: 0.58 MILLIGRAM, SINGLE (CYCLE 1, 1X ON 2 DAYS, 1-3 DAYS APART EVERY 6 WEEKS)
     Dates: start: 2025, end: 2025
  3. XIAFLEX [Suspect]
     Active Substance: COLLAGENASE CLOSTRIDIUM HISTOLYTICUM
     Dosage: 0.58 MILLIGRAM, SINGLE (CYCLE 2, 1X ON 2 DAYS, 1-3 DAYS APART EVERY 6 WEEKS)
     Dates: start: 2025, end: 2025
  4. XIAFLEX [Suspect]
     Active Substance: COLLAGENASE CLOSTRIDIUM HISTOLYTICUM
     Dosage: 0.58 MILLIGRAM, SINGLE (CYCLE 3, 1X ON 2 DAYS, 1-3 DAYS APART EVERY 6 WEEKS)
     Dates: start: 2025, end: 2025

REACTIONS (4)
  - Sneezing [Unknown]
  - Injection site nodule [Unknown]
  - Penile pain [Recovering/Resolving]
  - Injection site haematoma [Not Recovered/Not Resolved]

NARRATIVE: CASE EVENT DATE: 20250101
